FAERS Safety Report 5503421-9 (Version None)
Quarter: 2007Q4

REPORT INFORMATION
  Report Type: 
  Country: None (occurrence: None)
  Receive Date: 20071031
  Receipt Date: 20071019
  Transmission Date: 20080405
  Serious: Yes (Other)
  Sender: FDA-Public Use
  Company Number: US-PFIZER INC-2007089404

PATIENT
  Sex: Male
  Weight: 108.18 kg

DRUGS (4)
  1. CHANTIX [Suspect]
     Indication: SMOKING CESSATION THERAPY
     Dosage: TEXT:EVERY DAY
     Route: 048
  2. LIPITOR [Concomitant]
     Dosage: TEXT:20MG DAILY
  3. METFORMIN HCL [Concomitant]
     Dosage: TEXT:2000MG DAILY
  4. GLIPIZIDE [Concomitant]
     Dosage: TEXT:10MG TWICE DAILY

REACTIONS (9)
  - ABNORMAL DREAMS [None]
  - ANXIETY [None]
  - DEPRESSION [None]
  - FLATULENCE [None]
  - INSOMNIA [None]
  - IRRITABILITY [None]
  - MOOD ALTERED [None]
  - NERVOUSNESS [None]
  - POISONING [None]
